FAERS Safety Report 5910394-3 (Version None)
Quarter: 2008Q4

REPORT INFORMATION
  Report Type: 
  Country: None (occurrence: None)
  Receive Date: 20081007
  Receipt Date: 20080118
  Transmission Date: 20090506
  Serious: No
  Sender: FDA-Public Use
  Company Number: US-ASTRAZENECA-2008UW01381

PATIENT
  Age: 58 Year
  Sex: Female
  Weight: 79.8 kg

DRUGS (4)
  1. ARIMIDEX [Suspect]
     Indication: BREAST CANCER
     Route: 048
     Dates: start: 20060101
  2. SIMVASTATIN [Concomitant]
  3. CORGARD [Concomitant]
  4. BENACOR [Concomitant]

REACTIONS (9)
  - ALOPECIA [None]
  - BLOOD CHOLESTEROL INCREASED [None]
  - CARPAL TUNNEL SYNDROME [None]
  - HYPERTENSION [None]
  - MYALGIA [None]
  - NAIL DISORDER [None]
  - OSTEOPOROSIS [None]
  - URINARY TRACT INFECTION [None]
  - WEIGHT INCREASED [None]
